FAERS Safety Report 15009389 (Version 3)
Quarter: 2019Q1

REPORT INFORMATION
  Report Type: Spontaneous
  Country: IN (occurrence: IN)
  Receive Date: 20180614
  Receipt Date: 20190116
  Transmission Date: 20190417
  Serious: Yes (Life-Threatening, Hospitalization, Other)
  Sender: FDA-Public Use
  Company Number: IN-CONCORDIA PHARMACEUTICALS INC.-E2B_00012245

PATIENT
  Age: 30 Year
  Sex: Male

DRUGS (9)
  1. LINEZOLID. [Concomitant]
     Active Substance: LINEZOLID
     Indication: NOCARDIOSIS
     Route: 048
  2. AZORAN (AZATHIOPRINE) [Suspect]
     Active Substance: AZATHIOPRINE
     Indication: TYPE 2 LEPRA REACTION
     Dates: start: 20151016, end: 20160621
  3. RIFAMPICIN [Concomitant]
     Active Substance: RIFAMPIN
     Indication: LEPROSY
     Dosage: INITIAL INTENSIVE PHASE OF 15 DAYS OF DAILY RIFAMPICIN
  4. PREDNISOLONE. [Suspect]
     Active Substance: PREDNISOLONE
     Indication: TYPE 2 LEPRA REACTION
     Route: 048
     Dates: end: 20160818
  5. PREDNISOLONE. [Suspect]
     Active Substance: PREDNISOLONE
  6. DAPSONE. [Concomitant]
     Active Substance: DAPSONE
     Indication: TYPE 2 LEPRA REACTION
  7. DAPSONE. [Concomitant]
     Active Substance: DAPSONE
     Indication: LEPROSY
  8. PREDNISOLONE. [Suspect]
     Active Substance: PREDNISOLONE
     Dosage: HIGHER DOSE
     Route: 048
     Dates: start: 20150917
  9. CLOFAZIMINE [Concomitant]
     Active Substance: CLOFAZIMINE
     Indication: TYPE 2 LEPRA REACTION
     Dosage: HIGHER DOSE

REACTIONS (2)
  - Nocardiosis [Recovered/Resolved]
  - Leukopenia [Unknown]
